FAERS Safety Report 11350487 (Version 1)
Quarter: 2015Q3

REPORT INFORMATION
  Report Type: Spontaneous
  Country: US (occurrence: None)
  Receive Date: 20150805
  Receipt Date: 20150805
  Transmission Date: 20151125
  Serious: No
  Sender: FDA-Public Use
  Company Number: None

PATIENT
  Age: 77 Year
  Sex: Male

DRUGS (7)
  1. WARFARIN [Suspect]
     Active Substance: WARFARIN
     Indication: ATRIAL FIBRILLATION
     Dosage: VARIOUS DAILY PO
     Route: 048
     Dates: start: 20140811, end: 20140816
  2. FLUDROCORTISONE [Concomitant]
     Active Substance: FLUDROCORTISONE
  3. DOCUSATE [Concomitant]
     Active Substance: DOCUSATE
  4. DONEPEZIL. [Concomitant]
     Active Substance: DONEPEZIL
  5. MIDODRINE [Concomitant]
     Active Substance: MIDODRINE
  6. ATORVASTATIN [Concomitant]
     Active Substance: ATORVASTATIN
  7. METOPROLOL [Concomitant]
     Active Substance: METOPROLOL

REACTIONS (6)
  - Gastritis [None]
  - Gastrointestinal haemorrhage [None]
  - Hypotension [None]
  - International normalised ratio increased [None]
  - Dizziness [None]
  - Haematemesis [None]

NARRATIVE: CASE EVENT DATE: 20140817
